FAERS Safety Report 8413284-X (Version None)
Quarter: 2012Q2

REPORT INFORMATION
  Report Type: 
  Country: None (occurrence: None)
  Receive Date: 20120605
  Receipt Date: 20120529
  Transmission Date: 20120825
  Serious: Yes (Other)
  Sender: FDA-Public Use
  Company Number: PHEH2011US011725

PATIENT
  Sex: Female
  Weight: 68.4 kg

DRUGS (1)
  1. GLEEVEC [Suspect]
     Indication: NEOPLASM MALIGNANT
     Dosage: 400 MG, DAILY
     Route: 048
     Dates: start: 20111101

REACTIONS (4)
  - DIARRHOEA [None]
  - PERIORBITAL OEDEMA [None]
  - VAGINITIS BACTERIAL [None]
  - NAUSEA [None]
